FAERS Safety Report 4516394-2 (Version None)
Quarter: 2004Q4

REPORT INFORMATION
  Report Type: 
  Country: None (occurrence: None)
  Receive Date: 20041202
  Receipt Date: 20041125
  Transmission Date: 20050328
  Serious: Yes (Other)
  Sender: FDA-Public Use
  Company Number: 200414454FR

PATIENT
  Age: 41 Year
  Sex: Male

DRUGS (4)
  1. KETEK [Suspect]
     Indication: SINUSITIS
     Route: 048
     Dates: start: 20040607, end: 20040618
  2. IZILOX [Concomitant]
     Dates: start: 20040601
  3. SOLUPRED [Concomitant]
     Dates: start: 20040607, end: 20040611
  4. DERINOX [Concomitant]
     Dates: start: 20040607, end: 20040616

REACTIONS (2)
  - DYSGEUSIA [None]
  - PAROSMIA [None]
